FAERS Safety Report 6000327-6 (Version None)
Quarter: 2008Q4

REPORT INFORMATION
  Report Type: 
  Country: None (occurrence: None)
  Receive Date: 20081211
  Receipt Date: 20081211
  Transmission Date: 20090506
  Serious: Yes (Hospitalization)
  Sender: FDA-Public Use
  Company Number: None

PATIENT
  Sex: Male
  Weight: 65.5 kg

DRUGS (1)
  1. CISPLATIN [Suspect]
     Dosage: 187 MG
     Dates: end: 20081029

REACTIONS (12)
  - BLOOD COUNT ABNORMAL [None]
  - CANDIDIASIS [None]
  - CELLULITIS [None]
  - DEHYDRATION [None]
  - EXTRAVASATION [None]
  - HAEMOGLOBIN DECREASED [None]
  - IMPAIRED HEALING [None]
  - IMPLANT SITE INFECTION [None]
  - MALNUTRITION [None]
  - MUCOSAL INFLAMMATION [None]
  - NEUTROPENIA [None]
  - WHITE BLOOD CELL COUNT DECREASED [None]
